FAERS Safety Report 7290331-2 (Version None)
Quarter: 2011Q1

REPORT INFORMATION
  Report Type: 
  Country: None (occurrence: None)
  Receive Date: 20110214
  Receipt Date: 20110207
  Transmission Date: 20110831
  Serious: Yes (Hospitalization)
  Sender: FDA-Public Use
  Company Number: PHHY2011DE02300

PATIENT
  Sex: Male

DRUGS (3)
  1. EXTAVIA [Suspect]
     Dosage: 125 UG, QOD
     Route: 058
     Dates: start: 20101001
  2. BETAFERON [Suspect]
     Indication: MULTIPLE SCLEROSIS
     Dosage: 250 UG, QD
     Route: 058
     Dates: start: 19950101
  3. EXTAVIA [Suspect]
     Indication: MULTIPLE SCLEROSIS
     Dosage: 250 UG, QOD
     Route: 058
     Dates: end: 20101001

REACTIONS (6)
  - IMPAIRED HEALING [None]
  - NOSOCOMIAL INFECTION [None]
  - TRAUMATIC LIVER INJURY [None]
  - ABDOMINAL INJURY [None]
  - ROAD TRAFFIC ACCIDENT [None]
  - LARGE INTESTINE PERFORATION [None]
